FAERS Safety Report 24035139 (Version 1)
Quarter: 2024Q3

REPORT INFORMATION
  Report Type: Spontaneous
  Country: US (occurrence: US)
  Receive Date: 20240701
  Receipt Date: 20240701
  Transmission Date: 20241016
  Serious: Yes (Life-Threatening, Hospitalization, Other)
  Sender: HIKMA
  Company Number: US-MLMSERVICE-20240409-PI019803-00164-1

PATIENT
  Age: 72 Year
  Sex: Female

DRUGS (3)
  1. GALANTAMINE [Suspect]
     Active Substance: GALANTAMINE
     Indication: Dementia Alzheimer^s type
     Dosage: UNKNOWN
     Route: 065
  2. DONEPEZIL [Concomitant]
     Active Substance: DONEPEZIL\DONEPEZIL HYDROCHLORIDE
     Indication: Dementia Alzheimer^s type
     Dosage: UNKNOWN
     Route: 065
  3. ROSUVASTATIN [Concomitant]
     Active Substance: ROSUVASTATIN
     Indication: Product used for unknown indication
     Dosage: UNKNOWN
     Route: 065

REACTIONS (5)
  - Atrioventricular block complete [Recovered/Resolved]
  - Bundle branch block left [Recovered/Resolved]
  - Electrocardiogram QRS complex shortened [Recovered/Resolved]
  - Rhythm idioventricular [Recovered/Resolved]
  - Bundle branch block right [Recovered/Resolved]
